FAERS Safety Report 8805992 (Version 1)
Quarter: 2012Q4

REPORT INFORMATION
  Report Type: 
  Country: US (occurrence: US)
  Receive Date: 20120925
  Receipt Date: 20120925
  Transmission Date: 20130627
  Serious: No
  Sender: FDA-Public Use
  Company Number: US-B.I. PHARMACEUTICALS,INC./RIDGEFIELD-2012-BP-22854BP

PATIENT
  Age: 59 Year
  Sex: Female

DRUGS (9)
  1. PRADAXA [Suspect]
     Indication: THROMBOSIS
     Dosage: 300 mg
     Route: 048
     Dates: start: 20120913
  2. PRADAXA [Suspect]
     Indication: ATRIAL FIBRILLATION
  3. LISINOPRIL [Concomitant]
     Indication: HYPERTENSION
     Dosage: 20 mg
     Route: 048
     Dates: start: 2008
  4. LISINOPRIL [Concomitant]
     Indication: CARDIAC DISORDER
  5. COREG [Concomitant]
     Indication: HYPERTENSION
     Dosage: 50 mg
     Route: 048
     Dates: start: 2008
  6. COREG [Concomitant]
     Indication: CARDIAC DISORDER
  7. MAGNESIUM OXIDE [Concomitant]
     Indication: BLOOD MAGNESIUM DECREASED
     Dosage: 400 mg
     Route: 048
     Dates: start: 201207
  8. ALLOPURINOL [Concomitant]
     Indication: GOUT
     Dosage: 300 mg
     Route: 048
     Dates: start: 201109
  9. LASIX [Concomitant]
     Indication: OEDEMA PERIPHERAL
     Dosage: 40 mg
     Route: 048
     Dates: start: 2008

REACTIONS (4)
  - Headache [Not Recovered/Not Resolved]
  - Nausea [Not Recovered/Not Resolved]
  - Abdominal pain upper [Not Recovered/Not Resolved]
  - Dizziness [Not Recovered/Not Resolved]
